FAERS Safety Report 9389240 (Version 2)
Quarter: 2013Q3

REPORT INFORMATION
  Report Type: Spontaneous
  Country: US (occurrence: US)
  Receive Date: 20130708
  Receipt Date: 20130904
  Transmission Date: 20140515
  Serious: No
  Sender: FDA-Public Use
  Company Number: US-AMGEN-USASP2013040610

PATIENT
  Age: 47 Year
  Sex: Female

DRUGS (3)
  1. ENBREL [Suspect]
     Indication: PSORIASIS
     Dosage: 50 MG, 2 TIMES/WK
     Route: 058
     Dates: start: 20130508
  2. CLOBETASOL [Concomitant]
     Dosage: UNK
     Dates: start: 201301
  3. CLOBEX                             /00337102/ [Concomitant]
     Dosage: UNK
     Dates: start: 201210

REACTIONS (6)
  - Pruritus [Unknown]
  - Pain of skin [Not Recovered/Not Resolved]
  - Rash erythematous [Not Recovered/Not Resolved]
  - Inflammation [Unknown]
  - Skin plaque [Not Recovered/Not Resolved]
  - Skin mass [Not Recovered/Not Resolved]
